FAERS Safety Report 10119267 (Version 2)
Quarter: 2015Q1

REPORT INFORMATION
  Report Type: Other
  Country: US (occurrence: US)
  Receive Date: 20140426
  Receipt Date: 20150128
  Transmission Date: 20150720
  Serious: Yes (Hospitalization, Other)
  Sender: FDA-Public Use
  Company Number: US-GSKPPD-2014GSK021042

PATIENT
  Age: 62 Year
  Sex: Male

DRUGS (8)
  1. PLAVIX [Concomitant]
     Active Substance: CLOPIDOGREL BISULFATE
  2. BENICAR [Concomitant]
     Active Substance: OLMESARTAN MEDOXOMIL
  3. LOPRESSOR [Concomitant]
     Active Substance: METOPROLOL TARTRATE
  4. IMDUR [Concomitant]
     Active Substance: ISOSORBIDE MONONITRATE
  5. ASPIRIN. [Concomitant]
     Active Substance: ASPIRIN
  6. AVANDIA [Suspect]
     Active Substance: ROSIGLITAZONE MALEATE
     Indication: DIABETES MELLITUS
     Dosage: AVANDIA WAS NOT LISTED AMONG THE PATIENTS RECORDS REVIEWED.
     Route: 048
  7. AVANDARYL [Suspect]
     Active Substance: GLIMEPIRIDE\ROSIGLITAZONE MALEATE
     Indication: DIABETES MELLITUS
     Dosage: DATES OF AVANDARYL USE COULD NOT BE CONFIRMED IN RECORDS REVIEWED.
  8. CARDIZEM [Concomitant]
     Active Substance: DILTIAZEM HYDROCHLORIDE

REACTIONS (1)
  - Coronary arterial stent insertion [Recovered/Resolved]

NARRATIVE: CASE EVENT DATE: 20090527
